FAERS Safety Report 8812112 (Version 1)
Quarter: 2012Q4

REPORT INFORMATION
  Report Type: 
  Country: US (occurrence: US)
  Receive Date: 20120927
  Receipt Date: 20120927
  Transmission Date: 20130627
  Serious: Yes (Death)
  Sender: FDA-Public Use
  Company Number: US-ROCHE-1129783

PATIENT
  Sex: Female

DRUGS (19)
  1. HERCEPTIN [Suspect]
     Indication: BREAST CANCER METASTATIC
     Route: 042
     Dates: start: 19981109
  2. HERCEPTIN [Suspect]
     Route: 065
     Dates: start: 19981218
  3. HERCEPTIN [Suspect]
     Route: 065
     Dates: start: 19981223
  4. HERCEPTIN [Suspect]
     Route: 065
     Dates: start: 19990107
  5. CYTOXAN [Concomitant]
  6. ADRIAMYCIN [Concomitant]
  7. FLUOROURACIL [Concomitant]
  8. TAXOTERE [Concomitant]
  9. TAXOL [Concomitant]
  10. NAVELBINE [Concomitant]
  11. BENADRYL [Concomitant]
     Route: 042
     Dates: start: 19981218
  12. BENADRYL [Concomitant]
     Route: 042
     Dates: start: 19981223
  13. BENADRYL [Concomitant]
     Route: 042
     Dates: start: 19990107
  14. DECADRON [Concomitant]
     Route: 042
     Dates: start: 19981218
  15. DECADRON [Concomitant]
     Route: 042
     Dates: start: 19981223
  16. DECADRON [Concomitant]
     Route: 042
     Dates: start: 19990107
  17. PROCRIT [Concomitant]
     Dosage: 40000 u
     Route: 065
     Dates: start: 19981223
  18. PROCRIT [Concomitant]
     Dosage: 40000 u
     Route: 065
     Dates: start: 19990107
  19. PROCRIT [Concomitant]
     Dosage: 40000 u
     Route: 065
     Dates: start: 19990114

REACTIONS (1)
  - Death [Fatal]
